FAERS Safety Report 17855784 (Version 2)
Quarter: 2020Q3

REPORT INFORMATION
  Report Type: Spontaneous
  Country: CA (occurrence: CA)
  Receive Date: 20200603
  Receipt Date: 20200803
  Transmission Date: 20201103
  Serious: Yes (Hospitalization, Other)
  Sender: FDA-Public Use
  Company Number: CA-ACTELION-A-NJ2020-205675

PATIENT
  Sex: Male
  Weight: 73.47 kg

DRUGS (9)
  1. PANTOPRAZOLE [Concomitant]
     Active Substance: PANTOPRAZOLE
  2. OPSUMIT [Suspect]
     Active Substance: MACITENTAN
     Indication: PULMONARY ARTERIAL HYPERTENSION
     Dosage: 10 MG
     Route: 048
     Dates: start: 20151202
  3. MYCOPHENOLATE [Concomitant]
     Active Substance: MYCOPHENOLIC ACID
  4. ATENOLOL. [Concomitant]
     Active Substance: ATENOLOL
  5. ASAPHEN [Concomitant]
     Active Substance: ASPIRIN
  6. CITALOPRAM [Concomitant]
     Active Substance: CITALOPRAM HYDROBROMIDE
  7. ADALAT [Concomitant]
     Active Substance: NIFEDIPINE
  8. ATORVASTATIN [Concomitant]
     Active Substance: ATORVASTATIN
  9. ADCIRCA [Concomitant]
     Active Substance: TADALAFIL

REACTIONS (6)
  - Loss of consciousness [Recovering/Resolving]
  - Fall [Recovering/Resolving]
  - Facial bones fracture [Recovering/Resolving]
  - Lung neoplasm malignant [Not Recovered/Not Resolved]
  - Cough [Recovering/Resolving]
  - Bone cancer [Not Recovered/Not Resolved]
